FAERS Safety Report 7129108-7 (Version None)
Quarter: 2010Q4

REPORT INFORMATION
  Report Type: 
  Country: None (occurrence: None)
  Receive Date: 20101130
  Receipt Date: 20101123
  Transmission Date: 20110411
  Serious: Yes (Other)
  Sender: FDA-Public Use
  Company Number: DE-ROCHE-744739

PATIENT
  Sex: Female

DRUGS (2)
  1. HERCEPTIN [Suspect]
     Dosage: 112 CYCLES
     Route: 065
  2. BONDRONAT [Suspect]
     Indication: METASTASES TO BONE
     Route: 065

REACTIONS (2)
  - OEDEMA [None]
  - SKIN DISORDER [None]
